FAERS Safety Report 6863596-6 (Version None)
Quarter: 2010Q3

REPORT INFORMATION
  Report Type: 
  Country: None (occurrence: None)
  Receive Date: 20100720
  Receipt Date: 20100709
  Transmission Date: 20110219
  Serious: Yes (Hospitalization)
  Sender: FDA-Public Use
  Company Number: WAES1007USA01056

PATIENT
  Age: 67 Year
  Sex: Male
  Weight: 73.9363 kg

DRUGS (11)
  1. CAP VORINOSTAT UNK [Suspect]
     Indication: CHRONIC LYMPHOCYTIC LEUKAEMIA
     Dosage: 400 MG/DAILY/PO
     Route: 048
     Dates: start: 20100624, end: 20100630
  2. NIACINAMIDE UNK [Suspect]
     Indication: CHRONIC LYMPHOCYTIC LEUKAEMIA
     Dosage: 6200 MG/DAILY/PO
     Route: 048
     Dates: start: 20100624, end: 20100624
  3. ADVIL LIQUI-GELS [Concomitant]
  4. ALEVE (CAPLET) [Concomitant]
  5. AMBIEN [Concomitant]
  6. BARACLUDE [Concomitant]
  7. DIFLUCAN [Concomitant]
  8. MYLANTA [Concomitant]
  9. ASPIRIN [Concomitant]
  10. METOPROLOL [Concomitant]
  11. OXYCODONE [Concomitant]

REACTIONS (9)
  - ABDOMINAL DISCOMFORT [None]
  - ALANINE AMINOTRANSFERASE INCREASED [None]
  - ASPARTATE AMINOTRANSFERASE INCREASED [None]
  - DECREASED APPETITE [None]
  - FATIGUE [None]
  - HYPOPHAGIA [None]
  - MALIGNANT NEOPLASM PROGRESSION [None]
  - NAUSEA [None]
  - WHITE BLOOD CELL COUNT INCREASED [None]
